FAERS Safety Report 18851926 (Version 1)
Quarter: 2021Q1

REPORT INFORMATION
  Report Type: Spontaneous
  Country: US (occurrence: US)
  Receive Date: 20210205
  Receipt Date: 20210205
  Transmission Date: 20210420
  Serious: Yes (Hospitalization)
  Sender: FDA-Public Use
  Company Number: US-MYLANLABS-2021M1007198

PATIENT
  Age: 74 Year
  Sex: Female

DRUGS (27)
  1. HYDRALAZINE [Interacting]
     Active Substance: HYDRALAZINE HYDROCHLORIDE
     Indication: HYPERTENSION
     Dosage: 25 MILLIGRAM, BID, FROM DAY 11?DAY 29 OF ADMISSION
     Route: 048
  2. ACICLOVIR [Interacting]
     Active Substance: ACYCLOVIR
     Indication: INFECTION PROPHYLAXIS
     Dosage: 400 MILLIGRAM, BID, FROM DAY 16?DAY 29 OF ADMISSION
     Route: 048
  3. LABETALOL [Suspect]
     Active Substance: LABETALOL\LABETALOL HYDROCHLORIDE
     Dosage: 300 MILLIGRAM, BID, FROM DAY 11?DAY 19 OF ADMISSION
     Route: 048
  4. ACETAMINOPHEN. [Suspect]
     Active Substance: ACETAMINOPHEN
     Indication: MUSCLE SPASMS
  5. LIDOCAINE. [Concomitant]
     Active Substance: LIDOCAINE
     Indication: MUSCLE SPASMS
  6. PANTOPRAZOLE [Suspect]
     Active Substance: PANTOPRAZOLE
     Indication: GASTROINTESTINAL DISORDER PROPHYLAXIS
     Dosage: 40 MILLIGRAM, QD, FROM DAY 3?DAY 29 OF ADMISSION
     Route: 048
  7. DEXAMETHASONE. [Concomitant]
     Active Substance: DEXAMETHASONE
     Indication: MUSCLE SPASMS
     Dosage: 4 MILLIGRAM, QD, FROM DAY 16?DAY 20 OF ADMISSION
     Route: 042
  8. AMLODIPINE [Suspect]
     Active Substance: AMLODIPINE BESYLATE
     Indication: HYPERTENSION
     Dosage: 5 MILLIGRAM, QD, FROM DAY 12?DAY 29 OF ADMISSION
     Route: 048
  9. BACLOFEN. [Suspect]
     Active Substance: BACLOFEN
     Indication: BACK PAIN
     Dosage: 10 MILLIGRAM, TID THREE TIMES A DAY (FROM DAY 14?DAY 21 OF ADMISSION)
     Route: 048
  10. LABETALOL [Suspect]
     Active Substance: LABETALOL\LABETALOL HYDROCHLORIDE
     Dosage: 200 MILLIGRAM, BID, FROM DAY 19?DAY 29 OF ADMISSION
     Route: 048
  11. OXYCODONE [Concomitant]
     Active Substance: OXYCODONE
     Indication: BACK PAIN
     Dosage: 10 MILLIGRAM, TID  THREE TIMES A DAY (FROM DAY 19?DAY 29 OF ADMISSION)
     Route: 048
  12. DEXAMETHASONE. [Concomitant]
     Active Substance: DEXAMETHASONE
     Indication: PLASMA CELL MYELOMA
  13. TIZANIDINE. [Suspect]
     Active Substance: TIZANIDINE
     Indication: BACK PAIN
     Dosage: 2 MILLIGRAM, THREE TIMES A DAY (FROM DAY 9?DAY 11 OF ADMISSION)
     Route: 048
  14. BACLOFEN. [Suspect]
     Active Substance: BACLOFEN
     Indication: MUSCLE SPASMS
  15. LABETALOL [Suspect]
     Active Substance: LABETALOL\LABETALOL HYDROCHLORIDE
     Indication: HYPERTENSION
     Dosage: 200 MILLIGRAM, BID, FROM DAY 0?DAY 11 OF ADMISSION
     Route: 048
  16. DABIGATRAN [Suspect]
     Active Substance: DABIGATRAN
     Indication: ATRIAL FIBRILLATION
     Dosage: 150 MILLIGRAM, BID, FROM DAY 12?DAY 29 OF ADMISSION
     Route: 048
  17. HYDROCODONE BITARTRATE AND ACETAMINOPHEN [Suspect]
     Active Substance: ACETAMINOPHEN\HYDROCODONE BITARTRATE
     Indication: BACK PAIN
     Dosage: UNK, Q4H AS NEEDED (FROM DAY 2?DAY 14 OF ADMISSION)
     Route: 048
  18. METHADONE [Concomitant]
     Active Substance: METHADONE HYDROCHLORIDE
     Indication: BACK PAIN
     Dosage: 5 MILLIGRAM, Q6H, FROM DAY 10?DAY 29 OF ADMISSION
     Route: 048
  19. DEXAMETHASONE. [Concomitant]
     Active Substance: DEXAMETHASONE
     Indication: BACK PAIN
     Dosage: 20 MILLIGRAM, QD
     Route: 042
  20. DEXAMETHASONE. [Concomitant]
     Active Substance: DEXAMETHASONE
     Dosage: 4 MILLIGRAM, Q8H, FROM DAY 21?DAY 28 OF ADMISISON
     Route: 048
  21. OXYCODONE [Concomitant]
     Active Substance: OXYCODONE
     Dosage: 10 MILLIGRAM, Q4H10 MILLIGRAM, Q4H, FROM..
     Route: 048
  22. METHADONE [Concomitant]
     Active Substance: METHADONE HYDROCHLORIDE
     Indication: MUSCLE SPASMS
     Dosage: 5 MILLIGRAM, Q8H, FROM DAY 10?DAY 29 OF ADMISSION
     Route: 048
  23. LIDOCAINE. [Concomitant]
     Active Substance: LIDOCAINE
     Indication: BACK PAIN
     Dosage: UNK, QD FROM DAY 14?DAY 19 OF ADMISSION
     Route: 062
  24. BORTEZOMIB. [Interacting]
     Active Substance: BORTEZOMIB
     Indication: PLASMA CELL MYELOMA
     Dosage: 2.3 MILLIGRAM, 1.3 MG/M2; STARTED ON DAY 16 OF HOSPITALISATION (ON DAYS 1, 4 AND 8)
     Route: 058
  25. DEXAMETHASONE. [Concomitant]
     Active Substance: DEXAMETHASONE
     Indication: PLASMA CELL MYELOMA
     Dosage: 4 MILLIGRAM, Q6H, FROM DAY 21?DAY 28 OF ADMISISON
     Route: 048
  26. TIZANIDINE. [Interacting]
     Active Substance: TIZANIDINE
     Indication: MUSCLE SPASMS
  27. ACETAMINOPHEN. [Suspect]
     Active Substance: ACETAMINOPHEN
     Indication: BACK PAIN
     Dosage: 650 MILLIGRAM, Q4H, AS NEEDED
     Route: 048

REACTIONS (2)
  - Drug interaction [Recovering/Resolving]
  - Hepatic steatosis [Recovering/Resolving]
